FAERS Safety Report 4756942-0 (Version None)
Quarter: 2005Q3

REPORT INFORMATION
  Report Type: 
  Country: None (occurrence: None)
  Receive Date: 20050830
  Receipt Date: 20050311
  Transmission Date: 20060218
  Serious: Yes (Hospitalization, Other)
  Sender: FDA-Public Use
  Company Number: US-MERCK-0503USA02722

PATIENT
  Age: 38 Year
  Sex: Male
  Weight: 107 kg

DRUGS (4)
  1. VIOXX [Suspect]
     Indication: BACK INJURY
     Route: 048
     Dates: start: 20000101, end: 20020204
  2. VIOXX [Suspect]
     Route: 048
     Dates: start: 20020204, end: 20040901
  3. VITAMINS (UNSPECIFIED) [Concomitant]
     Route: 065
  4. VALTREX [Concomitant]
     Route: 065
     Dates: start: 19900101

REACTIONS (19)
  - ARTERIOVENOUS MALFORMATION [None]
  - ARTHRALGIA [None]
  - ATHEROSCLEROSIS [None]
  - ATRIOVENTRICULAR BLOCK [None]
  - BACK INJURY [None]
  - BLOOD CREATININE INCREASED [None]
  - CHEST WALL PAIN [None]
  - CORONARY ARTERY ATHEROSCLEROSIS [None]
  - DIZZINESS [None]
  - ILIOTIBIAL BAND SYNDROME [None]
  - JOINT EFFUSION [None]
  - JOINT INJURY [None]
  - LABILE HYPERTENSION [None]
  - MENISCUS LESION [None]
  - MUSCLE MASS [None]
  - MYOCARDIAL INFARCTION [None]
  - PANIC ATTACK [None]
  - TENDONITIS [None]
  - VIRAL INFECTION [None]
